FAERS Safety Report 9080485 (Version 1)
Quarter: 2013Q1

REPORT INFORMATION
  Report Type: Report from Study
  Country: US (occurrence: US)
  Receive Date: 20130130
  Receipt Date: 20130130
  Transmission Date: 20140127
  Serious: No
  Sender: FDA-Public Use
  Company Number: US-ABBOTT-12P-163-0972602-00

PATIENT
  Age: 20 Year
  Sex: Female

DRUGS (4)
  1. HUMIRA [Suspect]
     Indication: CROHN^S DISEASE
     Dates: start: 201204
  2. MULTIVITAMIN [Concomitant]
     Indication: SUPPLEMENTATION THERAPY
     Dosage: DAILY
  3. FISH OIL [Concomitant]
     Indication: SUPPLEMENTATION THERAPY
     Dosage: DAILY
  4. B 12 [Concomitant]
     Indication: SUPPLEMENTATION THERAPY
     Dosage: 1000MG DAILY

REACTIONS (5)
  - Skin fissures [Unknown]
  - Alopecia [Not Recovered/Not Resolved]
  - Rash papular [Unknown]
  - Exfoliative rash [Unknown]
  - Rash papular [Unknown]
